FAERS Safety Report 7811724-8 (Version None)
Quarter: 2011Q4

REPORT INFORMATION
  Report Type: 
  Country: None (occurrence: None)
  Receive Date: 20111013
  Receipt Date: 20111005
  Transmission Date: 20120403
  Serious: Yes (Hospitalization, Other)
  Sender: FDA-Public Use
  Company Number: FR-PFIZER INC-2011237613

PATIENT
  Age: 71 Year
  Sex: Male

DRUGS (12)
  1. PREDNISONE [Suspect]
     Dosage: 50 MG/DAY
  2. LANTUS [Concomitant]
     Dosage: 10 IU IN THE MORNING
  3. PRINCI-B [Concomitant]
     Dosage: 1 DF, 2X/DAY IN THE MORNING AND AT LUNCH TIME
  4. IMURAN [Suspect]
     Dosage: 150 MG, 1X/DAY AT LUNCH TIME
     Route: 048
     Dates: start: 20110501, end: 20110701
  5. FURADANTIN [Suspect]
     Dosage: 50 MG, UNK
     Dates: start: 20110701, end: 20110701
  6. RAMIPRIL [Suspect]
     Dosage: 1.5 MG, 1X/DAY IN THE MORNING
     Dates: end: 20110701
  7. ASPIRIN [Concomitant]
     Dosage: 160 MG, 1X/DAY AT LUNCH TIME
  8. CALCIUM CARBONATE [Concomitant]
     Dosage: 500 MG, 2X/DAY 1 IN THE MORNING AND AT LUNCH TIME
  9. NEXIUM [Concomitant]
     Dosage: 40 MG/DAY
  10. ATORVASTATIN CALCIUM [Suspect]
     Dosage: 40 MG, 1X/DAY AT NIGHT
     Route: 048
     Dates: end: 20110701
  11. BISOPROLOL [Suspect]
     Dosage: 2.5 MG, 1X/DAY IN THE MORNING
     Dates: end: 20110701
  12. ACETAMINOPHEN [Concomitant]
     Dosage: 500 MG, 1TO2 TABLETS, 4X/DAY

REACTIONS (11)
  - BUNDLE BRANCH BLOCK RIGHT [None]
  - PULMONARY HYPERTENSION [None]
  - VENTRICULAR EXTRASYSTOLES [None]
  - HEPATITIS [None]
  - MITRAL VALVE INCOMPETENCE [None]
  - TRICUSPID VALVE INCOMPETENCE [None]
  - HEPATOTOXICITY [None]
  - CHOLESTASIS [None]
  - AORTIC VALVE INCOMPETENCE [None]
  - ATRIOVENTRICULAR BLOCK FIRST DEGREE [None]
  - CHOLELITHIASIS [None]
